FAERS Safety Report 9403033 (Version 5)
Quarter: 2014Q4

REPORT INFORMATION
  Report Type: Spontaneous
  Country: US (occurrence: US)
  Receive Date: 20130716
  Receipt Date: 20141211
  Transmission Date: 20150529
  Serious: Yes (Hospitalization, Other)
  Sender: FDA-Public Use
  Company Number: US-GLAXOSMITHKLINE-A1032735A

PATIENT
  Sex: Male
  Weight: 92 kg

DRUGS (1)
  1. AVANDIA [Suspect]
     Active Substance: ROSIGLITAZONE MALEATE
     Indication: DIABETES MELLITUS
     Dosage: 4 MG, U
     Route: 048
     Dates: start: 200004, end: 201010

REACTIONS (3)
  - Transient ischaemic attack [Unknown]
  - Cerebrovascular accident [Unknown]
  - Cerebellar infarction [Unknown]
